FAERS Safety Report 9760310 (Version 3)
Quarter: 2014Q1

REPORT INFORMATION
  Report Type: Spontaneous
  Country: JP (occurrence: JP)
  Receive Date: 20131216
  Receipt Date: 20140326
  Transmission Date: 20141002
  Serious: Yes (Other)
  Sender: FDA-Public Use
  Company Number: JP-GLAXOSMITHKLINE-B0952764A

PATIENT
  Age: 0 Day
  Sex: Male

DRUGS (2)
  1. LAMICTAL [Suspect]
     Indication: EPILEPSY
     Route: 064
  2. LAMICTAL [Suspect]
     Indication: EPILEPSY
     Route: 063

REACTIONS (4)
  - Apnoea neonatal [Not Recovered/Not Resolved]
  - Heart rate decreased [Unknown]
  - Foetal exposure during pregnancy [Unknown]
  - Exposure during breast feeding [Unknown]
